FAERS Safety Report 9241649 (Version 1)
Quarter: 2013Q2

REPORT INFORMATION
  Report Type: Spontaneous
  Country: US (occurrence: US)
  Receive Date: 20130419
  Receipt Date: 20130419
  Transmission Date: 20140414
  Serious: Yes (Death)
  Sender: FDA-Public Use
  Company Number: US-AMGEN-USASP2013026625

PATIENT
  Age: 48 Year
  Sex: Male

DRUGS (15)
  1. NEUPOGEN [Suspect]
     Indication: NEUTROPENIA
     Dosage: UNK
     Dates: start: 20120514
  2. TAXOTERE [Concomitant]
     Indication: RENAL CELL CARCINOMA STAGE IV
     Dosage: UNK
  3. TAXOTERE [Concomitant]
     Indication: METASTATIC SQUAMOUS CELL CARCINOMA
  4. CISPLATIN [Concomitant]
     Indication: RENAL CELL CARCINOMA STAGE IV
     Dosage: UNK
  5. CISPLATIN [Concomitant]
     Indication: METASTATIC SQUAMOUS CELL CARCINOMA
  6. 5-FU /00098801/ [Concomitant]
     Indication: RENAL CELL CARCINOMA STAGE IV
     Dosage: UNK
  7. 5-FU /00098801/ [Concomitant]
     Indication: METASTATIC SQUAMOUS CELL CARCINOMA
  8. ERBITUX [Concomitant]
     Indication: RENAL CELL CARCINOMA STAGE IV
     Dosage: UNK
  9. ERBITUX [Concomitant]
     Indication: METASTATIC SQUAMOUS CELL CARCINOMA
  10. MEGACE [Concomitant]
     Dosage: UNK
  11. ENSURE                             /07499801/ [Concomitant]
     Dosage: UNK
  12. MORPHINE SULFATE [Concomitant]
     Dosage: UNK
  13. MS CONTIN [Concomitant]
     Dosage: 30 UNK, UNK
  14. PHENYTOIN [Concomitant]
     Dosage: UNK
  15. REGLAN                             /00041902/ [Concomitant]
     Dosage: UNK

REACTIONS (1)
  - Metastatic squamous cell carcinoma [Fatal]
